FAERS Safety Report 8990965 (Version 1)
Quarter: 2012Q4

REPORT INFORMATION
  Report Type: 
  Country: US (occurrence: US)
  Receive Date: 20121231
  Receipt Date: 20121231
  Transmission Date: 20130627
  Serious: Yes (Hospitalization, Other)
  Sender: FDA-Public Use
  Company Number: US-BAYER-2012-136311

PATIENT
  Age: 29 Year
  Sex: Female

DRUGS (6)
  1. YASMIN [Suspect]
  2. INDOMETHACIN [Concomitant]
  3. LEVOTHROID [Concomitant]
  4. SYNTHROID [Concomitant]
  5. ADVIL [Concomitant]
  6. INDOCIN [Concomitant]

REACTIONS (3)
  - Pulmonary embolism [Recovered/Resolved]
  - Thrombophlebitis superficial [None]
  - Gallbladder disorder [None]
